FAERS Safety Report 8720634 (Version 2)
Quarter: 2015Q2

REPORT INFORMATION
  Report Type: Report from Study
  Country: US (occurrence: US)
  Receive Date: 20120813
  Receipt Date: 20150626
  Transmission Date: 20150821
  Serious: Yes (Other)
  Sender: FDA-Public Use
  Company Number: US-ROCHE-1099334

PATIENT
  Sex: Female

DRUGS (11)
  1. ACTIVASE [Suspect]
     Active Substance: ALTEPLASE
     Dosage: FOR 60 MINUTES
     Route: 042
  2. DOCUSATE [Concomitant]
     Active Substance: DOCUSATE
     Route: 065
  3. ACETAMINOPHEN. [Concomitant]
     Active Substance: ACETAMINOPHEN
     Route: 048
  4. ACTIVASE [Suspect]
     Active Substance: ALTEPLASE
     Route: 042
  5. NALOXONE [Concomitant]
     Active Substance: NALOXONE
  6. HEPARIN [Concomitant]
     Active Substance: HEPARIN SODIUM
  7. ACTIVASE [Suspect]
     Active Substance: ALTEPLASE
     Dosage: FOR 30 MINUTES
     Route: 042
  8. PROMETHAZINE [Concomitant]
     Active Substance: PROMETHAZINE\PROMETHAZINE HYDROCHLORIDE
     Route: 065
  9. METOPROLOL TARTRATE. [Concomitant]
     Active Substance: METOPROLOL TARTRATE
     Route: 048
  10. ACTIVASE [Suspect]
     Active Substance: ALTEPLASE
     Indication: ACUTE MYOCARDIAL INFARCTION
     Route: 042
  11. LORAZEPAM. [Concomitant]
     Active Substance: LORAZEPAM
     Route: 065

REACTIONS (3)
  - Chest pain [Unknown]
  - Dyspnoea [Unknown]
  - Nausea [Unknown]
